FAERS Safety Report 8760418 (Version 6)
Quarter: 2014Q4

REPORT INFORMATION
  Report Type: Spontaneous
  Country: CA (occurrence: CA)
  Receive Date: 20120830
  Receipt Date: 20141003
  Transmission Date: 20150529
  Serious: Yes (Hospitalization)
  Sender: FDA-Public Use
  Company Number: CA-BIOGENIDEC-2012BI032895

PATIENT
  Age: 50 Year
  Sex: Male
  Weight: 86 kg

DRUGS (5)
  1. TYSABRI [Suspect]
     Active Substance: NATALIZUMAB
     Indication: RELAPSING-REMITTING MULTIPLE SCLEROSIS
     Route: 042
     Dates: start: 20070403
  2. ABILIFY [Concomitant]
     Active Substance: ARIPIPRAZOLE
  3. AMANTADINE [Concomitant]
     Active Substance: AMANTADINE
  4. CIPRALEX [Concomitant]
     Active Substance: ESCITALOPRAM OXALATE
  5. FAMPYRA [Concomitant]
     Active Substance: DALFAMPRIDINE
     Dates: end: 20120821

REACTIONS (2)
  - Immune reconstitution inflammatory syndrome [Recovered/Resolved]
  - Progressive multifocal leukoencephalopathy [Recovered/Resolved]

NARRATIVE: CASE EVENT DATE: 20120807
